FAERS Safety Report 4646812-0 (Version None)
Quarter: 2005Q2

REPORT INFORMATION
  Report Type: 
  Country: None (occurrence: None)
  Receive Date: 20050331
  Receipt Date: 20050124
  Transmission Date: 20051028
  Serious: No
  Sender: FDA-Public Use
  Company Number: 04P-163-0281365-00

PATIENT
  Age: 66 Year
  Sex: Male
  Weight: 136.4 kg

DRUGS (7)
  1. HUMIRA [Suspect]
     Indication: RHEUMATOID ARTHRITIS
     Dosage: 40 MG, 1 IN 2 WK, SUBCUTANEOUS;  40 MG, 1 IN 2 WK
     Route: 058
     Dates: start: 20030701, end: 20041201
  2. HUMIRA [Suspect]
     Indication: RHEUMATOID ARTHRITIS
     Dosage: 40 MG, 1 IN 2 WK, SUBCUTANEOUS;  40 MG, 1 IN 2 WK
     Route: 058
     Dates: start: 20050120
  3. METHOTREXATE SODIUM [Concomitant]
  4. METOPROLOL [Concomitant]
  5. FOLIC ACID [Concomitant]
  6. FINASTERIDE [Concomitant]
  7. FLOMAX [Concomitant]

REACTIONS (1)
  - SINUSITIS [None]
